FAERS Safety Report 18222284 (Version 1)
Quarter: 2020Q3

REPORT INFORMATION
  Report Type: Spontaneous
  Country: CA (occurrence: CA)
  Receive Date: 20200902
  Receipt Date: 20200902
  Transmission Date: 20201103
  Serious: Yes (Hospitalization)
  Sender: FDA-Public Use
  Company Number: CA-ACCORD-198287

PATIENT
  Age: 55 Year
  Sex: Female
  Weight: 51 kg

DRUGS (15)
  1. AMITRIPTYLINE [Concomitant]
     Active Substance: AMITRIPTYLINE
  2. FOLIC ACID. [Concomitant]
     Active Substance: FOLIC ACID
  3. HYDROMORPHONE/HYDROMORPHONE HYDROCHLORIDE [Concomitant]
     Active Substance: HYDROMORPHONE
  4. CYANOCOBALAMIN. [Concomitant]
     Active Substance: CYANOCOBALAMIN
  5. LIDOCAINE. [Concomitant]
     Active Substance: LIDOCAINE
     Dosage: SPRAY (NOT INHALATION)
  6. SALAGEN [Concomitant]
     Active Substance: PILOCARPINE HYDROCHLORIDE
  7. CINACALCET/CINACALCET HYDROCHLORIDE [Concomitant]
     Active Substance: CINACALCET\CINACALCET HYDROCHLORIDE
  8. FENTANYL. [Concomitant]
     Active Substance: FENTANYL
  9. OCTREOTIDE/OCTREOTIDE ACETATE [Concomitant]
     Active Substance: OCTREOTIDE ACETATE
  10. LANSOPRAZOLE. [Concomitant]
     Active Substance: LANSOPRAZOLE
  11. SENNA ALEXANDRINA [Concomitant]
     Active Substance: SENNA LEAF
  12. CISPLATIN. [Suspect]
     Active Substance: CISPLATIN
     Indication: PRODUCT USED FOR UNKNOWN INDICATION
     Dosage: SOLUTION INTRAVENOUS
  13. ERGOCALCIFEROL. [Concomitant]
     Active Substance: ERGOCALCIFEROL
  14. ATENOLOL (PREMPHARM) [Concomitant]
     Active Substance: ATENOLOL
  15. IRON [Concomitant]
     Active Substance: IRON

REACTIONS (7)
  - Chills [Recovered/Resolved]
  - Pyrexia [Recovered/Resolved]
  - Anaemia [Recovered/Resolved]
  - Febrile neutropenia [Recovered/Resolved]
  - Postoperative wound infection [Recovered/Resolved]
  - Mucosal inflammation [Recovered/Resolved]
  - Staphylococcal infection [Recovered/Resolved]
